FAERS Safety Report 6752971-6 (Version None)
Quarter: 2010Q2

REPORT INFORMATION
  Report Type: 
  Country: None (occurrence: None)
  Receive Date: 20100603
  Receipt Date: 20100524
  Transmission Date: 20101027
  Serious: Yes (Hospitalization, Disabling, Other)
  Sender: FDA-Public Use
  Company Number: JP-JNJFOC-20100402777

PATIENT
  Sex: Female
  Weight: 50 kg

DRUGS (14)
  1. DOXORUBICIN HCL [Suspect]
     Indication: OVARIAN CANCER
     Route: 042
  2. DOXORUBICIN HCL [Suspect]
     Route: 042
  3. ZOSYN [Concomitant]
     Indication: SEPSIS
     Route: 042
  4. DUROTEP MT [Concomitant]
     Route: 062
  5. DAI-KENCHU-TO [Concomitant]
     Route: 048
  6. MAGMITT [Concomitant]
     Route: 048
  7. LOXOPROFEN [Concomitant]
     Route: 048
  8. FERROMIA [Concomitant]
     Route: 048
  9. ADONA [Concomitant]
     Route: 048
  10. TRANEXAMIC ACID [Concomitant]
     Route: 048
  11. KENEI [Concomitant]
     Route: 054
  12. TAMIFLU [Concomitant]
     Indication: PROPHYLAXIS
     Route: 048
  13. SLOW-K [Concomitant]
     Indication: ILEUS PARALYTIC
     Route: 048
  14. CEFMETAZOLE SODIUM [Concomitant]
     Indication: SEPSIS
     Route: 042

REACTIONS (5)
  - CANCER PAIN [None]
  - FEMALE GENITAL TRACT FISTULA [None]
  - ILEUS PARALYTIC [None]
  - PYELONEPHRITIS [None]
  - SEPSIS [None]
